FAERS Safety Report 9964028 (Version 1)
Quarter: 2014Q1

REPORT INFORMATION
  Report Type: Report from Study
  Country: DE (occurrence: DE)
  Receive Date: 20140305
  Receipt Date: 20140305
  Transmission Date: 20141002
  Serious: No
  Sender: FDA-Public Use
  Company Number: PHHY2014DE026229

PATIENT
  Sex: Male

DRUGS (3)
  1. AMN107 [Suspect]
     Indication: CHRONIC MYELOID LEUKAEMIA
     Dosage: 600 MG, PER DAY
     Route: 048
     Dates: start: 20120329
  2. MCP//METOCLOPRAMIDE [Concomitant]
     Dosage: UNK
     Dates: start: 20120329
  3. OMEP [Concomitant]
     Dosage: 40 MG, UNK
     Dates: start: 20130611

REACTIONS (1)
  - Gastrooesophageal reflux disease [Recovered/Resolved]
